FAERS Safety Report 16210211 (Version 1)
Quarter: 2019Q2

REPORT INFORMATION
  Report Type: Spontaneous
  Country: BE (occurrence: BE)
  Receive Date: 20190418
  Receipt Date: 20190418
  Transmission Date: 20190711
  Serious: Yes (Death)
  Sender: FDA-Public Use
  Company Number: BE-ROCHE-1965259

PATIENT
  Sex: Female
  Weight: 57 kg

DRUGS (1)
  1. HERCEPTIN [Suspect]
     Active Substance: TRASTUZUMAB
     Indication: HER-2 POSITIVE BREAST CANCER
     Dosage: DATE OF POST DOSE (LAST DOSE): 15/JUN/2017
     Route: 058
     Dates: start: 20160627, end: 20170615

REACTIONS (2)
  - Maternal exposure during pregnancy [Unknown]
  - Breast cancer recurrent [Fatal]
